FAERS Safety Report 13503861 (Version 1)
Quarter: 2017Q2

REPORT INFORMATION
  Report Type: Spontaneous
  Country: RO (occurrence: RO)
  Receive Date: 20170502
  Receipt Date: 20170502
  Transmission Date: 20170830
  Serious: Yes (Life-Threatening)
  Sender: FDA-Public Use
  Company Number: RO-TEVA-763992ISR

PATIENT
  Age: 35 Year
  Sex: Female

DRUGS (1)
  1. COPAXONE [Suspect]
     Active Substance: GLATIRAMER ACETATE
     Indication: MULTIPLE SCLEROSIS
     Route: 058
     Dates: start: 20140410, end: 20170424

REACTIONS (6)
  - Erythema [Recovered/Resolved]
  - Face oedema [Recovered/Resolved]
  - Angioedema [Recovered/Resolved]
  - Tongue oedema [Recovered/Resolved]
  - Pharyngeal oedema [Recovered/Resolved]
  - Respiratory disorder [Recovered/Resolved]

NARRATIVE: CASE EVENT DATE: 20170424
